FAERS Safety Report 7079630-7 (Version None)
Quarter: 2010Q4

REPORT INFORMATION
  Report Type: 
  Country: None (occurrence: None)
  Receive Date: 20101102
  Receipt Date: 20101020
  Transmission Date: 20110411
  Serious: Yes (Other)
  Sender: FDA-Public Use
  Company Number: PHHY2010CA68011

PATIENT
  Sex: Male

DRUGS (1)
  1. ZOMETA [Suspect]
     Indication: SARCOMA
     Dosage: 4 MG, EVERY 12 WEEKS
     Route: 042
     Dates: start: 20100715

REACTIONS (4)
  - ALANINE AMINOTRANSFERASE DECREASED [None]
  - BLOOD THYROID STIMULATING HORMONE DECREASED [None]
  - NEUTROPHIL COUNT DECREASED [None]
  - RHINORRHOEA [None]
